FAERS Safety Report 11567699 (Version 2)
Quarter: 2016Q4

REPORT INFORMATION
  Report Type: Spontaneous
  Country: US (occurrence: US)
  Receive Date: 20150929
  Receipt Date: 20161115
  Transmission Date: 20170206
  Serious: No
  Sender: FDA-Public Use
  Company Number: US-AMGEN-USASP2015099601

PATIENT
  Age: 63 Year
  Sex: Female

DRUGS (2)
  1. ENBREL [Suspect]
     Active Substance: ETANERCEPT
     Dosage: UNK
     Route: 065
  2. ENBREL [Suspect]
     Active Substance: ETANERCEPT
     Indication: RHEUMATOID ARTHRITIS
     Dosage: 50 MG, WEEKLY
     Route: 058
     Dates: start: 2015

REACTIONS (5)
  - Asthma [Not Recovered/Not Resolved]
  - Injection site pain [Unknown]
  - Pain [Not Recovered/Not Resolved]
  - Urinary tract infection [Unknown]
  - Drug dose omission [Unknown]

NARRATIVE: CASE EVENT DATE: 20150923
